FAERS Safety Report 8816500 (Version 1)
Quarter: 2012Q4

REPORT INFORMATION
  Report Type: Spontaneous
  Country: US (occurrence: None)
  Receive Date: 20120927
  Receipt Date: 20120927
  Transmission Date: 20130627
  Serious: No
  Sender: FDA-Public Use
  Company Number: DSA_59724_2012

PATIENT
  Sex: Male
  Weight: 3.8 kg

DRUGS (2)
  1. METRONIDAZOLE (METRONIDAZOLE) [Suspect]
     Indication: VULVOVAGINITIS
     Route: 064
     Dates: start: 20111027, end: 20111101
  2. FEMIBION [Concomitant]

REACTIONS (5)
  - Caesarean section [None]
  - Maternal drugs affecting foetus [None]
  - Ventricular septal defect [None]
  - Atrial septal defect [None]
  - Atrial septal defect [None]
